FAERS Safety Report 20088547 (Version 4)
Quarter: 2022Q1

REPORT INFORMATION
  Report Type: Report from Study
  Country: CA (occurrence: CA)
  Receive Date: 20211119
  Receipt Date: 20220328
  Transmission Date: 20220423
  Serious: Yes (Hospitalization)
  Sender: FDA-Public Use
  Company Number: CA-ABBVIE-21K-028-4165739-00

PATIENT
  Sex: Male
  Weight: 81.720 kg

DRUGS (4)
  1. SKYRIZI [Suspect]
     Active Substance: RISANKIZUMAB-RZAA
     Indication: Psoriasis
     Route: 058
     Dates: start: 20211006
  2. SKYRIZI [Suspect]
     Active Substance: RISANKIZUMAB-RZAA
     Indication: Rheumatoid arthritis
  3. COLCHICINE [Concomitant]
     Active Substance: COLCHICINE
     Indication: Gout
     Dosage: TWICE A DAY FOR 3 DAYS AS NEEDED
  4. METHOTREXATE [Concomitant]
     Active Substance: METHOTREXATE
     Indication: Product used for unknown indication
     Dosage: 2 TABS FRIDAY AND 2 TABS SATURDAY AT 8PM

REACTIONS (2)
  - Myocardial infarction [Recovering/Resolving]
  - General physical health deterioration [Unknown]

NARRATIVE: CASE EVENT DATE: 20210101
